FAERS Safety Report 5245209-2 (Version None)
Quarter: 2007Q1

REPORT INFORMATION
  Report Type: 
  Country: None (occurrence: None)
  Receive Date: 20070223
  Receipt Date: 20070213
  Transmission Date: 20070707
  Serious: Yes (Hospitalization)
  Sender: FDA-Public Use
  Company Number: PHBS2004JP09203

PATIENT
  Age: 67 Year
  Sex: Female
  Weight: 51 kg

DRUGS (11)
  1. SYMMETREL [Suspect]
     Indication: PARKINSONISM
     Dosage: 50 MG, BID
     Route: 048
     Dates: start: 19951206, end: 19960710
  2. TRIHEXYPHENIDYL HYDROCHLORIDE [Suspect]
     Indication: PARKINSONISM
     Dosage: 2 MG, QD
     Route: 048
     Dates: start: 19960410, end: 20040618
  3. LEVODOPA W/BENSERAZIDE/ [Suspect]
     Indication: PARKINSONISM
     Dosage: 200 MG/DAY
     Route: 048
     Dates: start: 19950101, end: 19950101
  4. PARLODEL [Suspect]
     Indication: PARKINSONISM
     Dosage: 2.5 MG, QD
     Route: 048
     Dates: start: 19951101, end: 19960305
  5. PARLODEL [Suspect]
     Dosage: 2.5 MG, BID
     Route: 048
     Dates: start: 19960306, end: 19960710
  6. TALIPEXOLE [Suspect]
     Dosage: 2.0 MG/DAY
     Route: 048
     Dates: start: 19950101, end: 19950101
  7. TALIPEXOLE [Suspect]
     Dosage: 2.6 MG/DAY
     Dates: start: 19961024
  8. CARBIDOPA [Suspect]
     Route: 048
     Dates: start: 19950101, end: 19950101
  9. CARBIDOPA [Suspect]
     Dosage: 200 MG/DAY
     Dates: start: 20061026
  10. DISTIGMINE BROMIDE [Concomitant]
  11. NEODOPASOL [Concomitant]
     Indication: PARKINSONISM
     Dosage: 100 MG, BID
     Route: 048
     Dates: start: 19960618, end: 19960701

REACTIONS (20)
  - AUTONOMIC NERVOUS SYSTEM IMBALANCE [None]
  - BLOOD CHOLESTEROL INCREASED [None]
  - BLOOD PRESSURE DECREASED [None]
  - CARDIOMEGALY [None]
  - CEREBELLAR ATROPHY [None]
  - CONSTIPATION [None]
  - CONTUSION [None]
  - DRUG INTERACTION [None]
  - DYSSTASIA [None]
  - FALL [None]
  - GAIT DISTURBANCE [None]
  - HEAD INJURY [None]
  - HYPOKINESIA [None]
  - NECK PAIN [None]
  - PARKINSONISM [None]
  - SYNCOPE [None]
  - TORTICOLLIS [None]
  - URINARY INCONTINENCE [None]
  - URINARY RETENTION [None]
  - WEIGHT DECREASED [None]
